FAERS Safety Report 4673521-4 (Version None)
Quarter: 2005Q2

REPORT INFORMATION
  Report Type: 
  Country: None (occurrence: None)
  Receive Date: 20050523
  Receipt Date: 20050509
  Transmission Date: 20051028
  Serious: Yes (Life-Threatening, Hospitalization, Disabling, Other)
  Sender: FDA-Public Use
  Company Number: 2005072624

PATIENT
  Sex: Female
  Weight: 63.5036 kg

DRUGS (4)
  1. BEXTRA [Suspect]
     Indication: ARTHRITIS
     Dosage: ORAL
     Route: 048
  2. ANTIBIOTICS [Suspect]
     Indication: CYSTITIS
  3. VITAMINS (VITAMINS) [Concomitant]
  4. ANTIHYPERTENSIVES (ANTIHYPERTENSIVES) [Concomitant]

REACTIONS (18)
  - ACCIDENT [None]
  - ANKLE FRACTURE [None]
  - ASTHENIA [None]
  - BLINDNESS UNILATERAL [None]
  - CARDIAC VALVE DISEASE [None]
  - CEREBROVASCULAR ACCIDENT [None]
  - CYSTITIS [None]
  - DIABETES MELLITUS [None]
  - FALL [None]
  - FEAR [None]
  - HYPERTENSION [None]
  - LOWER LIMB FRACTURE [None]
  - MYOCARDIAL INFARCTION [None]
  - OCULAR VASCULAR DISORDER [None]
  - THROMBOSIS [None]
  - TREMOR [None]
  - URINARY BLADDER HAEMORRHAGE [None]
  - URINARY INCONTINENCE [None]
